FAERS Safety Report 10597222 (Version 2)
Quarter: 2014Q4

REPORT INFORMATION
  Report Type: Spontaneous
  Country: AT (occurrence: AT)
  Receive Date: 20141121
  Receipt Date: 20141211
  Transmission Date: 20150529
  Serious: No
  Sender: FDA-Public Use
  Company Number: AT-ACCORD-027168

PATIENT
  Age: 75 Year
  Sex: Female
  Weight: 72.2 kg

DRUGS (6)
  1. FENISTIL [Concomitant]
     Active Substance: DIMETHINDENE
     Dosage: FENISTIL AMPULLEN
     Route: 042
  2. FORTECORTIN [Concomitant]
     Active Substance: DEXAMETHASONE
     Route: 048
  3. ZOFRAN [Concomitant]
     Active Substance: ONDANSETRON HYDROCHLORIDE
     Route: 048
  4. ULSAL [Concomitant]
     Dosage: 50 MG / 2ML AMPOULES
     Route: 042
  5. DEXAMETHASONE. [Concomitant]
     Active Substance: DEXAMETHASONE
     Route: 042
  6. PACLITAXEL/PACLITAXEL LIPOSOME [Suspect]
     Active Substance: PACLITAXEL
     Indication: CHEMOTHERAPY
     Dates: start: 20141015

REACTIONS (2)
  - Malaise [Recovered/Resolved]
  - Erythema [Recovered/Resolved]

NARRATIVE: CASE EVENT DATE: 20141015
